FAERS Safety Report 6370084-2 (Version None)
Quarter: 2009Q3

REPORT INFORMATION
  Report Type: 
  Country: None (occurrence: None)
  Receive Date: 20090923
  Receipt Date: 20070626
  Transmission Date: 20100115
  Serious: Yes (Other)
  Sender: FDA-Public Use
  Company Number: US-ASTRAZENECA-2006UW12239

PATIENT
  Age: 46 Year
  Sex: Female
  Weight: 123.8 kg

DRUGS (22)
  1. SEROQUEL [Suspect]
     Indication: DEPRESSION
     Dosage: 100 MG DAILY, 100 MG QID, 200 MG DAILY, 400 MG HS
     Route: 048
     Dates: start: 20000904
  2. SEROQUEL [Suspect]
     Indication: INSOMNIA
     Dosage: 100 MG DAILY, 100 MG QID, 200 MG DAILY, 400 MG HS
     Route: 048
     Dates: start: 20000904
  3. SEROQUEL [Suspect]
     Route: 048
     Dates: start: 20000918
  4. SEROQUEL [Suspect]
     Route: 048
     Dates: start: 20000918
  5. LOTENSIN [Concomitant]
     Dates: start: 20000904
  6. CLONAZEPAM [Concomitant]
     Dates: start: 20000904
  7. SOMA [Concomitant]
     Dosage: 350 MG BID, 350 MG TID, 350 MG QID
     Route: 048
     Dates: start: 19950503
  8. WELLBUTRIN [Concomitant]
     Dates: start: 20000904
  9. DITROPAN XL [Concomitant]
     Dosage: 5 MG QD, 10 MG BID, 100 MG BID
     Dates: start: 20000904
  10. TOPAMAX [Concomitant]
     Indication: HEADACHE
     Dosage: 50 MG HS, 100 MG HS
     Dates: start: 20000904
  11. TOPAMAX [Concomitant]
     Indication: WEIGHT DECREASED
     Dosage: 50 MG HS, 100 MG HS
     Dates: start: 20000904
  12. ATIVAN [Concomitant]
     Route: 048
     Dates: start: 19930225
  13. VICODIN [Concomitant]
     Indication: PAIN
     Dosage: 5 MG Q 6 PRN
     Route: 048
     Dates: start: 19950503
  14. XANAX [Concomitant]
     Indication: ANXIETY
     Dosage: 0.5 MG Q 6-8 PRN, 2 MG BID
     Route: 048
     Dates: start: 19950503
  15. DARVOCET-N 100 [Concomitant]
     Route: 048
     Dates: start: 19950503
  16. GLUCOPHAGE [Concomitant]
     Dates: start: 20020618
  17. BENICAR [Concomitant]
     Dosage: 10 MG ONCE A DAY, 20 MG QD, 40 MG QD
     Dates: start: 20050224
  18. ADDERALL 10 [Concomitant]
     Indication: NARCOLEPSY
     Dates: start: 20040205
  19. GLUCOVANCE [Concomitant]
     Dosage: 250 THREE TIMES A DAY, 500 TID
     Dates: start: 20050224
  20. DOVONEX [Concomitant]
     Indication: PSORIASIS
     Dosage: DAILY, TWICE DAILY
     Route: 061
     Dates: start: 20000904
  21. HYDROCORTISONE 1% OINTMENT [Concomitant]
     Dosage: OTC TID
     Dates: start: 20040205
  22. ALBUTEROL [Concomitant]
     Dosage: 2 PUFFS QID, NEBULIZER
     Dates: start: 20000904

REACTIONS (4)
  - DIABETES MELLITUS [None]
  - DIABETES MELLITUS INADEQUATE CONTROL [None]
  - TARDIVE DYSKINESIA [None]
  - TYPE 2 DIABETES MELLITUS [None]
